FAERS Safety Report 4882174-1 (Version None)
Quarter: 2006Q1

REPORT INFORMATION
  Report Type: 
  Country: None (occurrence: None)
  Receive Date: 20060112
  Receipt Date: 20060103
  Transmission Date: 20060701
  Serious: Yes (Other)
  Sender: FDA-Public Use
  Company Number: US-2005-007375

PATIENT
  Age: 44 Year
  Sex: Female

DRUGS (2)
  1. BETASERON [Suspect]
     Indication: RELAPSING-REMITTING MULTIPLE SCLEROSIS
     Dosage: 8 MIU, EVERY 2 D, SUBCUTANEOUS
     Route: 058
     Dates: start: 20050104, end: 20050627
  2. CODEINE (CODEINE) [Concomitant]

REACTIONS (5)
  - CONDITION AGGRAVATED [None]
  - ERYTHEMA [None]
  - INFLUENZA LIKE ILLNESS [None]
  - PAIN [None]
  - RHEUMATOID ARTHRITIS [None]
